FAERS Safety Report 4884140-9 (Version None)
Quarter: 2006Q1

REPORT INFORMATION
  Report Type: 
  Country: None (occurrence: None)
  Receive Date: 20060118
  Receipt Date: 20051005
  Transmission Date: 20060701
  Serious: Yes (Hospitalization)
  Sender: FDA-Public Use
  Company Number: US-MERCK-0510USA03992

PATIENT
  Age: 69 Year
  Sex: Male
  Weight: 98 kg

DRUGS (1)
  1. VIOXX [Suspect]
     Indication: ARTHRITIS
     Route: 048
     Dates: start: 20000601, end: 20040804

REACTIONS (6)
  - AORTIC VALVE STENOSIS [None]
  - CALCULUS BLADDER [None]
  - CARDIAC DISORDER [None]
  - CARDIAC MURMUR [None]
  - OVERDOSE [None]
  - PROSTATIC DISORDER [None]
